FAERS Safety Report 9374077 (Version 2)
Quarter: 2013Q3

REPORT INFORMATION
  Report Type: Spontaneous
  Country: US (occurrence: US)
  Receive Date: 20130628
  Receipt Date: 20130716
  Transmission Date: 20140515
  Serious: Yes (Hospitalization)
  Sender: FDA-Public Use
  Company Number: US-BIOGENIDEC-2013BI054919

PATIENT
  Age: 65 Year
  Sex: Female

DRUGS (1)
  1. AVONEX [Suspect]
     Indication: MULTIPLE SCLEROSIS
     Route: 030
     Dates: start: 20121113

REACTIONS (5)
  - Myocardial infarction [Recovered/Resolved]
  - Coronary artery occlusion [Recovered/Resolved]
  - Incision site pain [Recovered/Resolved]
  - Memory impairment [Not Recovered/Not Resolved]
  - Agraphia [Not Recovered/Not Resolved]
